FAERS Safety Report 7916777-4 (Version None)
Quarter: 2011Q4

REPORT INFORMATION
  Report Type: 
  Country: None (occurrence: None)
  Receive Date: 20111116
  Receipt Date: 20111108
  Transmission Date: 20120403
  Serious: Yes (Hospitalization, Other)
  Sender: FDA-Public Use
  Company Number: US-ELI_LILLY_AND_COMPANY-US201111003253

PATIENT
  Sex: Female

DRUGS (2)
  1. HUMALOG [Suspect]
     Indication: DIABETES MELLITUS
     Dosage: UNK, PRN
     Dates: start: 19960101
  2. HUMULIN N [Suspect]
     Indication: DIABETES MELLITUS
     Dosage: 20 U, BID
     Dates: start: 19960101

REACTIONS (9)
  - CARDIAC FAILURE CONGESTIVE [None]
  - THROMBOSIS [None]
  - HAEMORRHAGIC STROKE [None]
  - BRAIN OEDEMA [None]
  - CORONARY ARTERIAL STENT INSERTION [None]
  - VASCULAR GRAFT COMPLICATION [None]
  - LYMPHOEDEMA [None]
  - SYSTEMIC LUPUS ERYTHEMATOSUS [None]
  - CARDIAC OPERATION [None]
